FAERS Safety Report 8150802-3 (Version None)
Quarter: 2012Q1

REPORT INFORMATION
  Report Type: 
  Country: None (occurrence: None)
  Receive Date: 20120220
  Receipt Date: 20110923
  Transmission Date: 20120608
  Serious: No
  Sender: FDA-Public Use
  Company Number: US-BAUSCH-2011BL006455

PATIENT
  Age: 52 Year
  Sex: Female

DRUGS (1)
  1. SULFACETAMIDE SODIUM AND PREDNISOLONE SODIUM PHOSPHATE [Suspect]
     Indication: EYE INFECTION
     Route: 047
     Dates: start: 20110915, end: 20110915

REACTIONS (4)
  - OCULAR HYPERAEMIA [None]
  - EYELID OEDEMA [None]
  - ERYTHEMA OF EYELID [None]
  - DRUG HYPERSENSITIVITY [None]
